FAERS Safety Report 7760120-0 (Version None)
Quarter: 2011Q3

REPORT INFORMATION
  Report Type: 
  Country: None (occurrence: None)
  Receive Date: 20110919
  Receipt Date: 20110912
  Transmission Date: 20111222
  Serious: Yes (Death)
  Sender: FDA-Public Use
  Company Number: IL-CELGENEUS-082-50794-11091334

PATIENT
  Age: 92 Year
  Sex: Female

DRUGS (1)
  1. VIDAZA [Suspect]
     Indication: MYELODYSPLASTIC SYNDROME
     Route: 065
     Dates: start: 20110505

REACTIONS (1)
  - DEATH [None]
